FAERS Safety Report 8649359 (Version 2)
Quarter: 2014Q2

REPORT INFORMATION
  Report Type: Spontaneous
  Country: CN (occurrence: CN)
  Receive Date: 20120705
  Receipt Date: 20140407
  Transmission Date: 20141212
  Serious: Yes (Hospitalization, Other)
  Sender: FDA-Public Use
  Company Number: CN-JNJFOC-20110507451

PATIENT
  Age: 42 Year
  Sex: Male
  Weight: 58 kg

DRUGS (2)
  1. RISPERDAL [Suspect]
     Indication: SCHIZOPHRENIA
     Route: 048
     Dates: start: 201102
  2. RISPERDAL [Suspect]
     Indication: SCHIZOPHRENIA
     Route: 048
     Dates: start: 20050327, end: 20110527

REACTIONS (3)
  - Hypotension [Recovering/Resolving]
  - Bradycardia [Not Recovered/Not Resolved]
  - Arrhythmia [Recovering/Resolving]
